FAERS Safety Report 5922439-5 (Version None)
Quarter: 2008Q3

REPORT INFORMATION
  Report Type: 
  Country: None (occurrence: None)
  Receive Date: 20080909
  Receipt Date: 20080523
  Transmission Date: 20090109
  Serious: Yes (Hospitalization)
  Sender: FDA-Public Use
  Company Number: 163-20785-08051531

PATIENT
  Age: 61 Year
  Sex: Male
  Weight: 88 kg

DRUGS (5)
  1. THALOMID [Suspect]
     Indication: GLIOBLASTOMA MULTIFORME
     Dosage: ORAL
     Route: 048
     Dates: start: 20080327
  2. IRINOTECAN HCL [Suspect]
     Indication: GLIOBLASTOMA MULTIFORME
     Dosage: 125 MG/M2, OVER 90 MIN, DAYS 1 + 15, INTRAVENOUS
     Route: 042
     Dates: start: 20071011, end: 20080313
  3. BEVACIZUMAB (BEVACIZUMAB) [Suspect]
     Indication: GLIOBLASTOMA MULTIFORME
     Dosage: 10 MG/KG, OVER 90-30 MIN, DAYS 1 + 15, INTRAVENOUS
     Route: 042
     Dates: start: 20071011, end: 20080313
  4. RITALIN [Suspect]
     Indication: DRUG USE FOR UNKNOWN INDICATION
  5. CARMUSTINE [Suspect]
     Indication: GLIOBLASTOMA MULTIFORME
     Dates: start: 20080327

REACTIONS (1)
  - CONVULSION [None]
